FAERS Safety Report 10462780 (Version 5)
Quarter: 2014Q4

REPORT INFORMATION
  Report Type: Spontaneous
  Country: US (occurrence: US)
  Receive Date: 20140918
  Receipt Date: 20141201
  Transmission Date: 20150528
  Serious: Yes (Hospitalization, Other)
  Sender: FDA-Public Use
  Company Number: US-PFIZER INC-2014257149

PATIENT
  Age: 89 Year
  Sex: Female
  Weight: 73 kg

DRUGS (2)
  1. PREMARIN [Suspect]
     Active Substance: ESTROGENS, CONJUGATED
     Dosage: UNK
     Route: 067
  2. PREMARIN [Suspect]
     Active Substance: ESTROGENS, CONJUGATED
     Indication: PELVIC PROLAPSE
     Dosage: 1.5 G, ALTERNATE DAY (EVERY OTHER DAY)
     Route: 067

REACTIONS (14)
  - Myocardial infarction [Recovered/Resolved]
  - Weight decreased [Recovered/Resolved]
  - Cerebrovascular accident [Recovered/Resolved]
  - Abdominal pain [Unknown]
  - Vulvovaginal pain [Not Recovered/Not Resolved]
  - Haemorrhage [Recovered/Resolved]
  - Hip fracture [Not Recovered/Not Resolved]
  - Fall [Not Recovered/Not Resolved]
  - Intentional product misuse [Unknown]
  - Product use issue [Unknown]
  - Cardiac disorder [Not Recovered/Not Resolved]
  - Pelvic pain [Recovered/Resolved]
  - Haematoma [Unknown]
  - Thrombosis [Unknown]

NARRATIVE: CASE EVENT DATE: 20130328
